FAERS Safety Report 12101432 (Version 1)
Quarter: 2016Q1

REPORT INFORMATION
  Report Type: Spontaneous
  Country: US (occurrence: US)
  Receive Date: 20160222
  Receipt Date: 20160222
  Transmission Date: 20160526
  Serious: Yes (Hospitalization, Other)
  Sender: FDA-Public Use
  Company Number: US-SHIONOGI, INC-2015000659

PATIENT
  Age: 76 Year
  Sex: Female
  Weight: 100.23 kg

DRUGS (7)
  1. NEXIUM [Concomitant]
     Active Substance: ESOMEPRAZOLE MAGNESIUM
     Indication: GASTROINTESTINAL DISORDER
     Dosage: 20 MG, QD
     Route: 048
     Dates: end: 20141223
  2. INVESTIGATIONAL DRUG [Suspect]
     Active Substance: INVESTIGATIONAL PRODUCT
     Indication: RHEUMATOID ARTHRITIS
  3. KEFLEX [Suspect]
     Active Substance: CEPHALEXIN
     Indication: STASIS DERMATITIS
  4. KEFLEX [Suspect]
     Active Substance: CEPHALEXIN
     Indication: NEUROPATHIC ULCER
  5. INVESTIGATIONAL DRUG [Suspect]
     Active Substance: INVESTIGATIONAL PRODUCT
     Indication: OSTEOARTHRITIS
     Dosage: TID
     Route: 048
     Dates: start: 20121026, end: 20141223
  6. KEFLEX [Suspect]
     Active Substance: CEPHALEXIN
     Indication: NEUROPATHIC ULCER
     Dosage: 500 MG, QID
     Route: 065
     Dates: start: 20141208, end: 20141222
  7. KEFLEX [Suspect]
     Active Substance: CEPHALEXIN
     Indication: CELLULITIS

REACTIONS (2)
  - Decubitus ulcer [Unknown]
  - Drug ineffective [Unknown]

NARRATIVE: CASE EVENT DATE: 201412
